FAERS Safety Report 20471608 (Version 1)
Quarter: 2022Q1

REPORT INFORMATION
  Report Type: Spontaneous
  Country: US (occurrence: US)
  Receive Date: 20220214
  Receipt Date: 20220214
  Transmission Date: 20220423
  Serious: No
  Sender: FDA-Public Use
  Company Number: US-SA-SAC20220209000034

PATIENT
  Age: 64 Year
  Sex: Female

DRUGS (1)
  1. DUPIXENT [Suspect]
     Active Substance: DUPILUMAB
     Indication: Dermatitis atopic
     Dosage: 150 MG/ML, QOW
     Route: 058
     Dates: start: 20191113

REACTIONS (2)
  - COVID-19 [Recovered/Resolved]
  - SARS-CoV-1 test positive [Recovered/Resolved]

NARRATIVE: CASE EVENT DATE: 20220122
